FAERS Safety Report 7527525-4 (Version None)
Quarter: 2011Q2

REPORT INFORMATION
  Report Type: 
  Country: None (occurrence: None)
  Receive Date: 20110512
  Receipt Date: 20110210
  Transmission Date: 20111010
  Serious: No
  Sender: FDA-Public Use
  Company Number: 1000018775

PATIENT
  Age: 47 Year
  Sex: Male

DRUGS (8)
  1. SAVELLA [Suspect]
     Indication: BACK PAIN
     Dosage: SEE IMAGE
     Route: 048
     Dates: start: 20110128, end: 20110129
  2. SAVELLA [Suspect]
     Indication: BACK PAIN
     Dosage: SEE IMAGE
     Route: 048
     Dates: start: 20110203, end: 20110201
  3. SAVELLA [Suspect]
     Indication: BACK PAIN
     Dosage: SEE IMAGE
     Route: 048
     Dates: start: 20110127, end: 20110127
  4. SAVELLA [Suspect]
     Indication: BACK PAIN
     Dosage: SEE IMAGE
     Route: 048
     Dates: start: 20110130, end: 20110202
  5. SAVELLA [Suspect]
     Indication: BACK PAIN
     Dosage: SEE IMAGE
     Route: 048
     Dates: start: 20110201
  6. SOMA (CARISOPRODOL) (TABLETS) (CARISOPRODOL) [Concomitant]
  7. MS CONTIN (MORPHINE SULFATE) (TABLETS) (MORPHINE SULFATE) [Concomitant]
  8. OPANA (OXYMORPHONE HYDROCHLORIDE) (TABLETS) (OXYMORPHONE HYDROCHLORIDE [Concomitant]

REACTIONS (10)
  - UNEVALUABLE EVENT [None]
  - MUSCULOSKELETAL STIFFNESS [None]
  - PALPITATIONS [None]
  - BLOOD PRESSURE INCREASED [None]
  - HEADACHE [None]
  - VOMITING [None]
  - PYREXIA [None]
  - HYPERHIDROSIS [None]
  - MOOD ALTERED [None]
  - MORBID THOUGHTS [None]
